FAERS Safety Report 9783372 (Version 1)
Quarter: 2013Q4

REPORT INFORMATION
  Report Type: Spontaneous
  Country: US (occurrence: US)
  Receive Date: 20131226
  Receipt Date: 20131226
  Transmission Date: 20140711
  Serious: Yes (Other)
  Sender: FDA-Public Use
  Company Number: US-BAYER-2013-156695

PATIENT
  Age: 43 Year
  Sex: Female
  Weight: 81.63 kg

DRUGS (11)
  1. YAZ [Suspect]
  2. YASMIN [Suspect]
  3. FLAGYL [Concomitant]
     Dosage: 500 MG, UNK
     Route: 048
  4. LEVAQUIN [Concomitant]
     Dosage: 500 MG, UNK
  5. IBUPROFEN [Concomitant]
     Indication: DIZZINESS
     Dosage: 800 MG, UNK
  6. IBUPROFEN [Concomitant]
     Indication: BACK PAIN
  7. SARAFEM [Concomitant]
  8. ORTHO CYCLEN [Concomitant]
  9. CELEBREX [Concomitant]
  10. VICODIN [Concomitant]
     Indication: DIZZINESS
  11. CIPRO [Concomitant]

REACTIONS (3)
  - Cholelithiasis [None]
  - Deep vein thrombosis [None]
  - Thrombophlebitis superficial [None]
